FAERS Safety Report 7371010-X (Version None)
Quarter: 2011Q1

REPORT INFORMATION
  Report Type: 
  Country: None (occurrence: None)
  Receive Date: 20110321
  Receipt Date: 20110321
  Transmission Date: 20110831
  Serious: Yes (Life-Threatening, Other)
  Sender: FDA-Public Use
  Company Number: None

PATIENT
  Age: 29 Year
  Sex: Female
  Weight: 124.2856 kg

DRUGS (1)
  1. NASONEX [Suspect]
     Indication: SKIN BACTERIAL INFECTION
     Dosage: 2 PUFFS ONCE A DAY NASAL
     Route: 045
     Dates: start: 20110315, end: 20110401

REACTIONS (5)
  - EYELID PTOSIS [None]
  - MUSCULAR WEAKNESS [None]
  - LACRIMATION INCREASED [None]
  - DEPRESSION [None]
  - INSOMNIA [None]
